FAERS Safety Report 6027713-2 (Version None)
Quarter: 2009Q1

REPORT INFORMATION
  Report Type: 
  Country: None (occurrence: None)
  Receive Date: 20090105
  Receipt Date: 20081003
  Transmission Date: 20090719
  Serious: No
  Sender: FDA-Public Use
  Company Number: US-BAYER-200829371NA

PATIENT
  Age: 54 Year
  Sex: Male

DRUGS (5)
  1. NEXAVAR [Suspect]
     Indication: HEPATIC NEOPLASM MALIGNANT
     Dosage: TOTAL DAILY DOSE: 800 MG  UNIT DOSE: 200 MG
     Route: 048
     Dates: start: 20080601
  2. METFORMIN HCL [Concomitant]
  3. TRAMADOL HCL [Concomitant]
  4. ENALAPRIL MALEATE [Concomitant]
  5. OXYCONTIN [Concomitant]

REACTIONS (3)
  - DIARRHOEA [None]
  - LARYNGITIS [None]
  - OROPHARYNGEAL BLISTERING [None]
